FAERS Safety Report 9919103 (Version 1)
Quarter: 2014Q1

REPORT INFORMATION
  Report Type: Spontaneous
  Country: US (occurrence: US)
  Receive Date: 20140224
  Receipt Date: 20140224
  Transmission Date: 20141002
  Serious: No
  Sender: FDA-Public Use
  Company Number: US-PFIZER INC-2014052595

PATIENT
  Age: 36 Year
  Sex: Female
  Weight: 134.24 kg

DRUGS (1)
  1. NEURONTIN [Suspect]
     Dosage: UNK

REACTIONS (2)
  - Impaired work ability [Unknown]
  - Drug ineffective [Unknown]
